FAERS Safety Report 7504432-4 (Version None)
Quarter: 2011Q2

REPORT INFORMATION
  Report Type: 
  Country: None (occurrence: None)
  Receive Date: 20110525
  Receipt Date: 20110513
  Transmission Date: 20111010
  Serious: Yes (Other)
  Sender: FDA-Public Use
  Company Number: DE-UCBSA-028144

PATIENT
  Sex: Female
  Weight: 72 kg

DRUGS (3)
  1. CERTOLIZUMAB PEGOL [Suspect]
     Indication: RHEUMATOID ARTHRITIS
     Route: 058
     Dates: start: 20110218
  2. PREDNISOLONE [Concomitant]
     Dosage: 5MG
  3. TRAMADOL HCL [Concomitant]

REACTIONS (1)
  - HYPERSENSITIVITY [None]
